FAERS Safety Report 6262817-0 (Version None)
Quarter: 2009Q3

REPORT INFORMATION
  Report Type: 
  Country: None (occurrence: None)
  Receive Date: 20090708
  Receipt Date: 20090625
  Transmission Date: 20100115
  Serious: Yes (Hospitalization)
  Sender: FDA-Public Use
  Company Number: 8027728

PATIENT
  Age: 76 Year
  Sex: Female
  Weight: 61.8 kg

DRUGS (9)
  1. CDP870 [Suspect]
     Indication: RHEUMATOID ARTHRITIS
     Dosage: 400 MG 1/2W SC
     Route: 058
     Dates: start: 20040211, end: 20071017
  2. FOSAMAX [Concomitant]
  3. PRILOSEC [Concomitant]
  4. POTASSIUM CHLORIDE [Concomitant]
  5. CITRACAL +D [Concomitant]
  6. CLARITIN-D [Concomitant]
  7. TYLENOL (CAPLET) [Concomitant]
  8. JOINT FORMULA [Concomitant]
  9. MULTIVITAMIN [Concomitant]

REACTIONS (27)
  - ABDOMINAL PAIN [None]
  - ACUTE PRERENAL FAILURE [None]
  - ACUTE RESPIRATORY FAILURE [None]
  - ASTHENIA [None]
  - BLOOD CHLORIDE DECREASED [None]
  - BLOOD GLUCOSE INCREASED [None]
  - CEREBRAL ISCHAEMIA [None]
  - DECREASED APPETITE [None]
  - DEHYDRATION [None]
  - DYSPHAGIA [None]
  - FATIGUE [None]
  - HAEMATOCRIT DECREASED [None]
  - HEADACHE [None]
  - HEPATIC STEATOSIS [None]
  - HIP ARTHROPLASTY [None]
  - HISTOPLASMOSIS DISSEMINATED [None]
  - HYPERTENSION [None]
  - HYPONATRAEMIA [None]
  - HYPOTENSION [None]
  - HYPOVOLAEMIA [None]
  - LYMPHOCYTE MORPHOLOGY ABNORMAL [None]
  - NOSOCOMIAL INFECTION [None]
  - PLATELET COUNT DECREASED [None]
  - PNEUMONIA [None]
  - RENAL FAILURE ACUTE [None]
  - SEPTIC SHOCK [None]
  - SPLENOMEGALY [None]
